FAERS Safety Report 7214569-5 (Version None)
Quarter: 2011Q1

REPORT INFORMATION
  Report Type: 
  Country: None (occurrence: None)
  Receive Date: 20110107
  Receipt Date: 20101111
  Transmission Date: 20110831
  Serious: Yes (Hospitalization)
  Sender: FDA-Public Use
  Company Number: US-BAYER-201029199NA

PATIENT
  Sex: Female
  Weight: 45 kg

DRUGS (9)
  1. PROVIGIL [Concomitant]
     Dosage: 300 MG (DAILY DOSE), ,
  2. OCELLA [Suspect]
     Indication: ORAL CONTRACEPTION
  3. ALBUTEROL INHALER [Concomitant]
  4. YASMIN [Suspect]
     Indication: ACNE
  5. TRAMADOL [Concomitant]
     Indication: PAIN
  6. YASMIN [Suspect]
     Indication: CEREBRAL INFARCTION
     Dosage: UNK UNK, UNK
     Route: 048
     Dates: start: 20061201, end: 20080701
  7. OCELLA [Suspect]
     Indication: ACNE
     Route: 048
     Dates: start: 20080701, end: 20080804
  8. VICODIN [Concomitant]
  9. UNCODEABLE ^UNCLASSIFIABLE^ [Concomitant]
     Indication: MUSCULOSKELETAL PAIN

REACTIONS (14)
  - JOINT SWELLING [None]
  - NAUSEA [None]
  - DEEP VEIN THROMBOSIS [None]
  - AXILLARY PAIN [None]
  - CEREBRAL INFARCTION [None]
  - ERYTHEMA [None]
  - PULMONARY EMBOLISM [None]
  - OEDEMA PERIPHERAL [None]
  - CHILLS [None]
  - MUSCULOSKELETAL PAIN [None]
  - HYPOAESTHESIA [None]
  - PYREXIA [None]
  - CELLULITIS [None]
  - BLISTER [None]
